FAERS Safety Report 6789883-8 (Version None)
Quarter: 2010Q2

REPORT INFORMATION
  Report Type: 
  Country: None (occurrence: None)
  Receive Date: 20100624
  Receipt Date: 20100614
  Transmission Date: 20101027
  Serious: Yes (Hospitalization)
  Sender: FDA-Public Use
  Company Number: US-JNJFOC-20100604818

PATIENT
  Age: 58 Year
  Sex: Female
  Weight: 59 kg

DRUGS (4)
  1. REMICADE [Suspect]
     Indication: RHEUMATOID ARTHRITIS
     Dosage: FREQUENCY REPORTED AS ^Q2^
     Route: 042
  2. CORTEF [Concomitant]
  3. ARAVA [Concomitant]
  4. ACTONEL [Concomitant]

REACTIONS (5)
  - ADRENAL INSUFFICIENCY [None]
  - BLOOD CULTURE POSITIVE [None]
  - PNEUMONIA LEGIONELLA [None]
  - RHEUMATOID ARTHRITIS [None]
  - STAPHYLOCOCCAL INFECTION [None]
